FAERS Safety Report 19642075 (Version 1)
Quarter: 2021Q3

REPORT INFORMATION
  Report Type: Spontaneous
  Country: SE (occurrence: SE)
  Receive Date: 20210730
  Receipt Date: 20210730
  Transmission Date: 20211014
  Serious: Yes (Life-Threatening)
  Sender: FDA-Public Use
  Company Number: SE-TEVA-2021-SE-1936652

PATIENT
  Age: 40 Year
  Sex: Female

DRUGS (1)
  1. CLOZAPINE ACTAVIS 25 MG TABLETT [Suspect]
     Active Substance: CLOZAPINE
     Indication: DELUSION
     Dosage: DOSAGE ^DIFFERENT SHORT PERIOD HIGH DOSE^
     Route: 048
     Dates: start: 20160526, end: 20180303

REACTIONS (2)
  - Loss of proprioception [Recovered/Resolved]
  - Pyrexia [Recovered/Resolved with Sequelae]

NARRATIVE: CASE EVENT DATE: 20160702
